FAERS Safety Report 9720743 (Version 1)
Quarter: 2013Q4

REPORT INFORMATION
  Report Type: Spontaneous
  Country: US (occurrence: US)
  Receive Date: 20131129
  Receipt Date: 20131129
  Transmission Date: 20140711
  Serious: Yes (Hospitalization)
  Sender: FDA-Public Use
  Company Number: PHHY2013US137159

PATIENT
  Age: 52 Year
  Sex: Female

DRUGS (7)
  1. CARBAMAZEPINE [Suspect]
     Dosage: 700 MG, UNK
  2. FLUOXETINE [Concomitant]
  3. ARIPIPRAZOLE [Concomitant]
  4. DIAZEPAM [Concomitant]
  5. TRAZODONE [Concomitant]
  6. ROPINIROLE [Concomitant]
  7. PROPOFOL [Concomitant]

REACTIONS (11)
  - Coma [Recovered/Resolved]
  - Torsade de pointes [Unknown]
  - Sinus tachycardia [Recovered/Resolved]
  - Pulse absent [Unknown]
  - Drug level increased [Recovered/Resolved]
  - Electrocardiogram QRS complex prolonged [Recovering/Resolving]
  - Grand mal convulsion [Recovered/Resolved]
  - Arrhythmia [Recovered/Resolved]
  - Tachycardia [Unknown]
  - Heart rate increased [Unknown]
  - Blood pressure decreased [Unknown]
